FAERS Safety Report 6959801-8 (Version None)
Quarter: 2010Q3

REPORT INFORMATION
  Report Type: 
  Country: None (occurrence: None)
  Receive Date: 20100901
  Receipt Date: 20100825
  Transmission Date: 20110219
  Serious: No
  Sender: FDA-Public Use
  Company Number: US-BIOGENIDEC-2010BI029605

PATIENT
  Age: 45 Year
  Sex: Female

DRUGS (2)
  1. TYSABRI [Suspect]
     Indication: MULTIPLE SCLEROSIS
     Route: 042
     Dates: start: 20070802, end: 20091028
  2. TYSABRI [Suspect]
     Route: 042
     Dates: start: 20100223

REACTIONS (6)
  - ASTHENIA [None]
  - COUGH [None]
  - HYPOAESTHESIA [None]
  - ORAL HERPES [None]
  - RHINORRHOEA [None]
  - TEMPERATURE INTOLERANCE [None]
